FAERS Safety Report 4334027-5 (Version None)
Quarter: 2004Q1

REPORT INFORMATION
  Report Type: 
  Country: None (occurrence: None)
  Receive Date: 20040329
  Receipt Date: 20040114
  Transmission Date: 20041129
  Serious: No
  Sender: FDA-Public Use
  Company Number: 04P-163-0247103-00

PATIENT
  Age: 64 Year
  Sex: Male

DRUGS (9)
  1. HUMIRA [Suspect]
     Indication: RHEUMATOID ARTHRITIS
     Dosage: 40 MG, 1 IN 2 WK, SUBCUTANEOUS
     Route: 058
     Dates: start: 20030819
  2. ASPIRIN [Concomitant]
  3. RANITIDINE HYDROCHLORIDE [Concomitant]
  4. IRBESARTAN [Concomitant]
  5. DIGOXIN [Concomitant]
  6. THEOPHYLLINE [Concomitant]
  7. NIFEDIPINE [Concomitant]
  8. METOPROLOL SUCCINATE [Concomitant]
  9. SALMETEROL XINAFOATE [Concomitant]

REACTIONS (3)
  - CHEST DISCOMFORT [None]
  - RHEUMATOID ARTHRITIS [None]
  - TENDONITIS [None]
